FAERS Safety Report 7714360-7 (Version None)
Quarter: 2011Q3

REPORT INFORMATION
  Report Type: 
  Country: None (occurrence: None)
  Receive Date: 20110829
  Receipt Date: 20101007
  Transmission Date: 20111222
  Serious: No
  Sender: FDA-Public Use
  Company Number: US-BAYER-201036193NA

PATIENT
  Age: 43 Year
  Sex: Female

DRUGS (2)
  1. FLAGYL [Concomitant]
  2. CIPROFLOXACIN [Suspect]
     Indication: ANTIBIOTIC THERAPY
     Dosage: 500 MG, UNK
     Route: 048
     Dates: start: 20100514, end: 20100919

REACTIONS (3)
  - PAIN IN EXTREMITY [None]
  - MYALGIA [None]
  - TENDONITIS [None]
